FAERS Safety Report 23538793 (Version 2)
Quarter: 2024Q3

REPORT INFORMATION
  Report Type: Spontaneous
  Country: AU (occurrence: AU)
  Receive Date: 20240219
  Receipt Date: 20240909
  Transmission Date: 20241016
  Serious: Yes (Hospitalization, Disabling, Congenital Anomaly, Other)
  Sender: PERRIGO
  Company Number: None

PATIENT
  Age: 1 Day
  Sex: Male
  Weight: 2.65 kg

DRUGS (21)
  1. ACETAMINOPHEN [Suspect]
     Active Substance: ACETAMINOPHEN
     Indication: Maternal exposure during pregnancy
     Dosage: UNK UNK,UNK
     Route: 064
  2. ACETAMINOPHEN [Suspect]
     Active Substance: ACETAMINOPHEN
     Indication: Vulvovaginal candidiasis
     Dosage: UNK UNK,UNK
     Route: 064
  3. RANITIDINE [Suspect]
     Active Substance: RANITIDINE
     Indication: Maternal exposure during pregnancy
     Dosage: UNK UNK,UNK
     Route: 064
  4. RANITIDINE [Suspect]
     Active Substance: RANITIDINE
     Indication: Haemorrhage prophylaxis
  5. CEFTRIAXONE [Suspect]
     Active Substance: CEFTRIAXONE\CEFTRIAXONE SODIUM
     Indication: Maternal exposure during pregnancy
     Dosage: UNK UNK,UNK
     Route: 064
  6. CEFTRIAXONE [Suspect]
     Active Substance: CEFTRIAXONE\CEFTRIAXONE SODIUM
     Indication: Urinary tract infection
     Dosage: UNK
     Route: 064
  7. CEPHALEXIN [Suspect]
     Active Substance: CEPHALEXIN
     Indication: Maternal exposure during pregnancy
     Dosage: UNK UNK,UNK
     Route: 064
  8. CEPHALEXIN [Suspect]
     Active Substance: CEPHALEXIN
     Indication: Urinary tract infection
  9. HEPARIN SODIUM [Suspect]
     Active Substance: HEPARIN SODIUM
     Indication: Maternal exposure during pregnancy
     Dosage: 5000 IU, TID
     Route: 064
  10. AMPICILLIN [Suspect]
     Active Substance: AMPICILLIN
     Indication: Maternal exposure during pregnancy
     Dosage: UNK UNK,UNK
     Route: 064
  11. AMPICILLIN [Suspect]
     Active Substance: AMPICILLIN
     Indication: Urinary tract infection
     Dosage: UNK
     Route: 064
  12. FLUCONAZOLE [Suspect]
     Active Substance: FLUCONAZOLE
     Indication: Maternal exposure during pregnancy
     Dosage: UNK UNK,UNK
     Route: 064
  13. FLUCONAZOLE [Suspect]
     Active Substance: FLUCONAZOLE
     Indication: Vulvovaginal candidiasis
  14. MEROPENEM [Suspect]
     Active Substance: MEROPENEM
     Indication: Maternal exposure during pregnancy
     Dosage: UNK UNK,UNK
     Route: 064
  15. MEROPENEM [Suspect]
     Active Substance: MEROPENEM
     Indication: Urinary tract infection
  16. GENTAMICIN SULFATE [Suspect]
     Active Substance: GENTAMICIN SULFATE
     Indication: Maternal exposure during pregnancy
     Dosage: UNK UNK,UNK
     Route: 064
  17. GENTAMICIN SULFATE [Suspect]
     Active Substance: GENTAMICIN SULFATE
     Indication: Urinary tract infection
     Dosage: UNK UNK,UNK
     Route: 064
  18. AMOXICILLIN [Suspect]
     Active Substance: AMOXICILLIN
     Indication: Maternal exposure during pregnancy
     Dosage: UNK UNK,UNK
     Route: 064
  19. AMOXICILLIN [Suspect]
     Active Substance: AMOXICILLIN
     Indication: Urinary tract infection
  20. ENOXAPARIN SODIUM [Suspect]
     Active Substance: ENOXAPARIN SODIUM
     Indication: Maternal exposure during pregnancy
     Dosage: 40 MG, BID
     Route: 064
     Dates: start: 2005
  21. ENOXAPARIN SODIUM [Suspect]
     Active Substance: ENOXAPARIN SODIUM
     Indication: Thrombosis prophylaxis

REACTIONS (11)
  - Diplegia [Unknown]
  - Joint dislocation [Unknown]
  - Joint contracture [Unknown]
  - Cerebral palsy [Unknown]
  - Talipes [Unknown]
  - Congenital multiplex arthrogryposis [Unknown]
  - Hypotonia [Unknown]
  - Conductive deafness [Unknown]
  - Foetal exposure during pregnancy [Unknown]
  - Otitis media [Unknown]
  - Congenital musculoskeletal disorder [Unknown]
